FAERS Safety Report 15072993 (Version 1)
Quarter: 2018Q2

REPORT INFORMATION
  Report Type: Spontaneous
  Country: US (occurrence: US)
  Receive Date: 20180627
  Receipt Date: 20180627
  Transmission Date: 20180711
  Serious: Yes (Hospitalization)
  Sender: FDA-Public Use
  Company Number: US-BEH-2018092073

PATIENT
  Age: 44 Year
  Sex: Female
  Weight: 68.27 kg

DRUGS (31)
  1. DIPHENHYDRAMINE. [Concomitant]
     Active Substance: DIPHENHYDRAMINE
  2. LEVOTHYROXINE. [Concomitant]
     Active Substance: LEVOTHYROXINE
  3. MULTIVITAMIN                       /00097801/ [Concomitant]
     Active Substance: VITAMINS
  4. KETOROLAC [Concomitant]
     Active Substance: KETOROLAC\KETOROLAC TROMETHAMINE
  5. ADVAIR HFA [Concomitant]
     Active Substance: FLUTICASONE PROPIONATE\SALMETEROL XINAFOATE
  6. PRIVIGEN [Suspect]
     Active Substance: HUMAN IMMUNOGLOBULIN G
     Indication: IMMUNODEFICIENCY COMMON VARIABLE
     Dosage: UNK
     Route: 042
  7. IMITREX [Concomitant]
     Active Substance: SUMATRIPTAN SUCCINATE
  8. CRANBERRY                          /01512301/ [Concomitant]
     Active Substance: CRANBERRY
  9. SINGULAIR [Concomitant]
     Active Substance: MONTELUKAST SODIUM
  10. VENTOLIN [Concomitant]
     Active Substance: ALBUTEROL SULFATE
  11. FENOFIBRATE. [Concomitant]
     Active Substance: FENOFIBRATE
  12. PRIVIGEN [Suspect]
     Active Substance: HUMAN IMMUNOGLOBULIN G
     Dosage: 35 G, EVERY 3 WEEKS
     Route: 042
     Dates: start: 20120816
  13. SODIUM CHLORIDE. [Concomitant]
     Active Substance: SODIUM CHLORIDE
  14. TURMERIC                           /01079602/ [Concomitant]
     Active Substance: HERBALS\TURMERIC
  15. TEGRETOL [Concomitant]
     Active Substance: CARBAMAZEPINE
  16. LASIX [Concomitant]
     Active Substance: FUROSEMIDE
  17. OMEPRAZOLE. [Concomitant]
     Active Substance: OMEPRAZOLE
  18. CYANOCOBALAMIN. [Concomitant]
     Active Substance: CYANOCOBALAMIN
  19. METRONIDAZOLE                      /00012503/ [Concomitant]
  20. PRIVIGEN [Suspect]
     Active Substance: HUMAN IMMUNOGLOBULIN G
     Dosage: UNK
     Route: 042
  21. PRAVASTATIN. [Concomitant]
     Active Substance: PRAVASTATIN
  22. EPINEPHRINE. [Concomitant]
     Active Substance: EPINEPHRINE
  23. VITAMIN C [Concomitant]
     Active Substance: ASCORBIC ACID
  24. VITAMIN D2 [Concomitant]
     Active Substance: ERGOCALCIFEROL
  25. POTASSIUM [Concomitant]
     Active Substance: POTASSIUM
  26. PROBIOTIC                          /06395501/ [Concomitant]
     Active Substance: BIFIDOBACTERIUM ANIMALIS LACTIS
  27. GABAPENTIN. [Concomitant]
     Active Substance: GABAPENTIN
  28. METFORMIN [Concomitant]
     Active Substance: METFORMIN HYDROCHLORIDE
  29. FOLIC ACID. [Concomitant]
     Active Substance: FOLIC ACID
  30. ACETAMINOPHEN. [Concomitant]
     Active Substance: ACETAMINOPHEN
  31. FLONASE [Concomitant]
     Active Substance: FLUTICASONE PROPIONATE

REACTIONS (1)
  - Hospitalisation [Unknown]

NARRATIVE: CASE EVENT DATE: 201806
